FAERS Safety Report 12282674 (Version 2)
Quarter: 2016Q2

REPORT INFORMATION
  Report Type: Spontaneous
  Country: US (occurrence: US)
  Receive Date: 20160419
  Receipt Date: 20160428
  Transmission Date: 20160815
  Serious: Yes (Hospitalization)
  Sender: FDA-Public Use
  Company Number: US-VERTEX PHARMACEUTICALS-2016-002450

PATIENT
  Age: 52 Year
  Sex: Female

DRUGS (20)
  1. ADVAIR HFA [Concomitant]
     Active Substance: FLUTICASONE PROPIONATE\SALMETEROL XINAFOATE
  2. PULMOZYME [Concomitant]
     Active Substance: DORNASE ALFA
  3. SALINE [Concomitant]
     Active Substance: SODIUM CHLORIDE
  4. ACETYLCYSTEINE. [Concomitant]
     Active Substance: ACETYLCYSTEINE
  5. QUETIAPINE. [Concomitant]
     Active Substance: QUETIAPINE
  6. AZITHROMYCIN ANHYDROUS. [Concomitant]
     Active Substance: AZITHROMYCIN ANHYDROUS
  7. LEVALBUTEROL. [Concomitant]
     Active Substance: LEVALBUTEROL
  8. ZOLOFT [Concomitant]
     Active Substance: SERTRALINE HYDROCHLORIDE
  9. MUCINEX [Concomitant]
     Active Substance: GUAIFENESIN
  10. FERROUS SULFATE. [Concomitant]
     Active Substance: FERROUS SULFATE
  11. NYSTATIN. [Concomitant]
     Active Substance: NYSTATIN
  12. DICLOFENAC [Concomitant]
     Active Substance: DICLOFENAC
  13. KALYDECO [Suspect]
     Active Substance: IVACAFTOR
     Indication: CYSTIC FIBROSIS
     Dosage: 150 MG, BID
     Route: 048
     Dates: start: 20150702
  14. CLONAZEPAM. [Concomitant]
     Active Substance: CLONAZEPAM
  15. PROTONIX [Concomitant]
     Active Substance: PANTOPRAZOLE SODIUM
  16. LORATADINE. [Concomitant]
     Active Substance: LORATADINE
  17. PANCRELIPASE. [Concomitant]
     Active Substance: PANCRELIPASE
  18. LEVOFLOXACIN. [Concomitant]
     Active Substance: LEVOFLOXACIN
  19. GUANFACINE. [Concomitant]
     Active Substance: GUANFACINE
  20. MULTIVITE [Concomitant]
     Active Substance: VITAMINS

REACTIONS (1)
  - Hospitalisation [Unknown]

NARRATIVE: CASE EVENT DATE: 20160405
